FAERS Safety Report 19176732 (Version 2)
Quarter: 2021Q3

REPORT INFORMATION
  Report Type: Report from Study
  Country: US (occurrence: US)
  Receive Date: 20210424
  Receipt Date: 20210728
  Transmission Date: 20211014
  Serious: No
  Sender: FDA-Public Use
  Company Number: NVSC2021US093113

PATIENT
  Sex: Female

DRUGS (1)
  1. COSENTYX [Suspect]
     Active Substance: SECUKINUMAB
     Indication: PSORIATIC ARTHROPATHY
     Dosage: UNK UNK, QMO (ONCE EVERY 4 WEEKS) (BENEATH THE SKIN, USUALLY VIA INJECTION)
     Route: 058
     Dates: start: 202101

REACTIONS (1)
  - Drug ineffective [Unknown]
